FAERS Safety Report 14364743 (Version 1)
Quarter: 2018Q1

REPORT INFORMATION
  Report Type: Spontaneous
  Country: GB (occurrence: GB)
  Receive Date: 20180106
  Receipt Date: 20180106
  Transmission Date: 20180509
  Serious: Yes (Disabling)
  Sender: FDA-Public Use
  Company Number: None

PATIENT
  Age: 29 Year
  Sex: Female
  Weight: 63 kg

DRUGS (6)
  1. EUMOVATE [Suspect]
     Active Substance: CLOBETASONE BUTYRATE
     Indication: DERMATITIS ATOPIC
     Dosage: QUANTITY:5 TUBES;?
     Route: 061
     Dates: start: 20160101, end: 20170704
  2. DIPROBASE CREAM [Concomitant]
  3. DIPROBASE OINTMENT [Concomitant]
  4. SALBUTAMOL INHALER [Concomitant]
  5. ELECON (TOPICAL CORTICOSTEROID) [Concomitant]
  6. DERMOVATE [Suspect]
     Active Substance: CLOBETASOL
     Indication: DERMATITIS ATOPIC
     Dosage: ?          QUANTITY:2 TUBES;?
     Route: 061
     Dates: start: 20161215, end: 20170131

REACTIONS (22)
  - Loss of personal independence in daily activities [None]
  - Wound secretion [None]
  - Neuralgia [None]
  - Feeling hot [None]
  - Hunger [None]
  - Pruritus [None]
  - Eye swelling [None]
  - Hyperhidrosis [None]
  - Rebound effect [None]
  - Weight decreased [None]
  - Impaired work ability [None]
  - Insomnia [None]
  - Skin burning sensation [None]
  - Fatigue [None]
  - Emotional disorder [None]
  - Erythema [None]
  - Eczema [None]
  - Secretion discharge [None]
  - Chills [None]
  - Drug dependence [None]
  - Skin exfoliation [None]
  - Withdrawal syndrome [None]

NARRATIVE: CASE EVENT DATE: 20170201
